FAERS Safety Report 11821944 (Version 17)
Quarter: 2017Q2

REPORT INFORMATION
  Report Type: Spontaneous
  Country: US (occurrence: US)
  Receive Date: 20151210
  Receipt Date: 20170517
  Transmission Date: 20170829
  Serious: Yes (Death, Hospitalization)
  Sender: FDA-Public Use
  Company Number: US-JNJFOC-20150706913

PATIENT
  Age: 82 Year
  Sex: Female

DRUGS (19)
  1. IMBRUVICA [Suspect]
     Active Substance: IBRUTINIB
     Indication: CHRONIC LYMPHOCYTIC LEUKAEMIA
     Route: 048
     Dates: start: 20170130
  2. FENTANYL. [Concomitant]
     Active Substance: FENTANYL
  3. IMBRUVICA [Suspect]
     Active Substance: IBRUTINIB
     Indication: BURKITT^S LYMPHOMA
     Route: 048
     Dates: start: 20170130
  4. IMBRUVICA [Suspect]
     Active Substance: IBRUTINIB
     Indication: CHRONIC LYMPHOCYTIC LEUKAEMIA
     Route: 048
     Dates: start: 20150203
  5. IMBRUVICA [Suspect]
     Active Substance: IBRUTINIB
     Indication: BURKITT^S LYMPHOMA
     Route: 048
     Dates: start: 20161213, end: 20170220
  6. IMBRUVICA [Suspect]
     Active Substance: IBRUTINIB
     Indication: CHRONIC LYMPHOCYTIC LEUKAEMIA
     Route: 048
     Dates: start: 20161213, end: 20170220
  7. NORCO [Concomitant]
     Active Substance: ACETAMINOPHEN\HYDROCODONE BITARTRATE
  8. IMBRUVICA [Suspect]
     Active Substance: IBRUTINIB
     Indication: MENISCUS INJURY
     Route: 048
     Dates: start: 20170130
  9. ZOFRAN [Concomitant]
     Active Substance: ONDANSETRON HYDROCHLORIDE
  10. IMBRUVICA [Suspect]
     Active Substance: IBRUTINIB
     Indication: BURKITT^S LYMPHOMA
     Route: 048
     Dates: start: 20150203
  11. IMBRUVICA [Suspect]
     Active Substance: IBRUTINIB
     Indication: MENISCUS INJURY
     Route: 048
     Dates: start: 20150203
  12. IMBRUVICA [Suspect]
     Active Substance: IBRUTINIB
     Indication: MENISCUS INJURY
     Route: 048
     Dates: start: 20161213, end: 20170220
  13. IMBRUVICA [Suspect]
     Active Substance: IBRUTINIB
     Indication: CHRONIC LYMPHOCYTIC LEUKAEMIA
     Route: 048
     Dates: start: 20150203
  14. LANTUS [Concomitant]
     Active Substance: INSULIN GLARGINE
  15. XANAX [Concomitant]
     Active Substance: ALPRAZOLAM
  16. TEMAZEPAM. [Concomitant]
     Active Substance: TEMAZEPAM
  17. IMBRUVICA [Suspect]
     Active Substance: IBRUTINIB
     Indication: BURKITT^S LYMPHOMA
     Route: 048
     Dates: start: 20150203
  18. IMBRUVICA [Suspect]
     Active Substance: IBRUTINIB
     Indication: MENISCUS INJURY
     Route: 048
     Dates: start: 20150203
  19. PERCOCET [Concomitant]
     Active Substance: ACETAMINOPHEN\OXYCODONE HYDROCHLORIDE

REACTIONS (11)
  - Burkitt^s lymphoma [Fatal]
  - Weight decreased [Recovering/Resolving]
  - Product use issue [Not Recovered/Not Resolved]
  - Increased tendency to bruise [Not Recovered/Not Resolved]
  - Haemoptysis [Unknown]
  - Arthralgia [Recovering/Resolving]
  - Contusion [Unknown]
  - Blood blister [Recovering/Resolving]
  - Fall [Recovered/Resolved]
  - Off label use [Not Recovered/Not Resolved]
  - Prescribed underdose [Not Recovered/Not Resolved]

NARRATIVE: CASE EVENT DATE: 20150203
